FAERS Safety Report 11932229 (Version 25)
Quarter: 2020Q3

REPORT INFORMATION
  Report Type: Spontaneous
  Country: NL (occurrence: NL)
  Receive Date: 20160120
  Receipt Date: 20200803
  Transmission Date: 20201102
  Serious: Yes (Hospitalization, Other)
  Sender: FDA-Public Use
  Company Number: NL-ASTELLAS-2016US001878

PATIENT
  Age: 92 Year
  Sex: Male

DRUGS (14)
  1. BETMIGA [Suspect]
     Active Substance: MIRABEGRON
     Route: 048
     Dates: start: 20161011
  2. LISINOPRIL AND HYDROCHLOROTHIAZIDE [Concomitant]
     Active Substance: HYDROCHLOROTHIAZIDE\LISINOPRIL
     Indication: ANGIOPATHY
  3. OMEPRAZOLE. [Concomitant]
     Active Substance: OMEPRAZOLE
     Indication: ABDOMINAL PAIN UPPER
     Route: 065
  4. AMLODIPINE [Concomitant]
     Active Substance: AMLODIPINE BESYLATE
     Indication: PAIN PROPHYLAXIS
     Route: 065
  5. VESICARE [Suspect]
     Active Substance: SOLIFENACIN SUCCINATE
     Route: 048
     Dates: start: 20161124
  6. PRAVASTATIN SODIUM. [Concomitant]
     Active Substance: PRAVASTATIN SODIUM
     Indication: BLOOD CHOLESTEROL
     Route: 065
  7. ACETYLSALICYLIC ACID [Concomitant]
     Active Substance: ASPIRIN
     Indication: ANGIOPATHY
     Route: 065
     Dates: end: 20161111
  8. BETMIGA [Suspect]
     Active Substance: MIRABEGRON
     Indication: BLADDER DISORDER
     Dosage: 50 MG, 1 TABLET TWICE DAILY
     Route: 048
     Dates: start: 2015, end: 20160802
  9. LISINOPRIL AND HYDROCHLOROTHIAZIDE [Concomitant]
     Active Substance: HYDROCHLOROTHIAZIDE\LISINOPRIL
     Indication: CARDIAC DISORDER
     Dosage: 12.5 MG, 1 TABLET ONCE
     Route: 065
  10. VESICARE [Suspect]
     Active Substance: SOLIFENACIN SUCCINATE
     Route: 048
     Dates: end: 20161111
  11. VESICARE [Suspect]
     Active Substance: SOLIFENACIN SUCCINATE
     Route: 048
     Dates: start: 20180308, end: 202002
  12. METOPROLOL SUCCINATE. [Concomitant]
     Active Substance: METOPROLOL SUCCINATE
     Indication: PAIN PROPHYLAXIS
     Route: 065
  13. VESICARE [Suspect]
     Active Substance: SOLIFENACIN SUCCINATE
     Indication: BLADDER PAIN
     Route: 048
     Dates: start: 20160129
  14. VESICARE [Suspect]
     Active Substance: SOLIFENACIN SUCCINATE
     Dosage: 5 MG, AS NEEDED (AD HOC)
     Route: 048

REACTIONS (32)
  - Bladder pain [Not Recovered/Not Resolved]
  - Blood urine present [Recovered/Resolved]
  - Musculoskeletal chest pain [Not Recovered/Not Resolved]
  - Constipation [Recovering/Resolving]
  - Urinary bladder haemorrhage [Recovered/Resolved]
  - Pain in extremity [Recovering/Resolving]
  - Breast pain [Unknown]
  - Deep vein thrombosis [Recovering/Resolving]
  - Overdose [Unknown]
  - Eye contusion [Unknown]
  - Somnolence [Unknown]
  - Salivary hypersecretion [Unknown]
  - Blood urine present [Recovered/Resolved]
  - Blood urine present [Recovered/Resolved]
  - Blood urine present [Recovered/Resolved]
  - Catheter site related reaction [Unknown]
  - Inappropriate schedule of product administration [Unknown]
  - Urinary retention [Recovered/Resolved]
  - Fall [Unknown]
  - Device leakage [Unknown]
  - Diarrhoea [Recovered/Resolved]
  - Dementia Alzheimer^s type [Unknown]
  - Thrombosis [Recovered/Resolved]
  - Urinary tract infection [Recovered/Resolved]
  - Bladder pain [Not Recovered/Not Resolved]
  - Blood urine present [Recovered/Resolved]
  - Abdominal pain [Not Recovered/Not Resolved]
  - Bladder pain [Recovered/Resolved]
  - Contusion [Not Recovered/Not Resolved]
  - Device leakage [Unknown]
  - Catheter site haemorrhage [Unknown]
  - Product use in unapproved indication [Unknown]

NARRATIVE: CASE EVENT DATE: 2015
